FAERS Safety Report 25456156 (Version 1)
Quarter: 2025Q2

REPORT INFORMATION
  Report Type: Report from Study
  Country: US (occurrence: US)
  Receive Date: 20250619
  Receipt Date: 20250619
  Transmission Date: 20250717
  Serious: Yes (Other)
  Sender: ABBVIE
  Company Number: US-ABBVIE-6333815

PATIENT
  Sex: Male

DRUGS (2)
  1. VENETOCLAX [Suspect]
     Active Substance: VENETOCLAX
     Indication: Acute myeloid leukaemia
     Dosage: 28 DAYS IN A 28 DAY CYCLE FOR THE LATEST CYCLE
     Route: 048
     Dates: start: 20231106, end: 20250302
  2. AZACITIDINE [Concomitant]
     Active Substance: AZACITIDINE
     Indication: Product used for unknown indication
     Dates: start: 20231106

REACTIONS (3)
  - Acute myeloid leukaemia [Unknown]
  - Pancytopenia [Unknown]
  - Therapeutic product effect incomplete [Unknown]
